FAERS Safety Report 7693508-7 (Version None)
Quarter: 2011Q3

REPORT INFORMATION
  Report Type: 
  Country: None (occurrence: None)
  Receive Date: 20110819
  Receipt Date: 20110819
  Transmission Date: 20111222
  Serious: Yes (Hospitalization)
  Sender: FDA-Public Use
  Company Number: None

PATIENT
  Sex: Male
  Weight: 77 kg

DRUGS (1)
  1. YERVOY [Suspect]
     Indication: METASTATIC MALIGNANT MELANOMA
     Dosage: 3MG/KG
     Route: 042
     Dates: start: 20110427, end: 20110427

REACTIONS (4)
  - DIARRHOEA [None]
  - HYPOTENSION [None]
  - PYREXIA [None]
  - PULMONARY EMBOLISM [None]
